FAERS Safety Report 11289550 (Version 1)
Quarter: 2015Q3

REPORT INFORMATION
  Report Type: Spontaneous
  Country: BE (occurrence: BE)
  Receive Date: 20150721
  Receipt Date: 20150721
  Transmission Date: 20151125
  Serious: Yes (Hospitalization)
  Sender: FDA-Public Use
  Company Number: BE-GLAXOSMITHKLINE INC.-BE2015GSK103239

PATIENT

DRUGS (4)
  1. REQUIP [Suspect]
     Active Substance: ROPINIROLE HYDROCHLORIDE
     Indication: PARKINSON^S DISEASE
     Dosage: 2 MG, QD
  2. REQUIP [Suspect]
     Active Substance: ROPINIROLE HYDROCHLORIDE
     Dosage: 4 MG, UNK
  3. REQUIP [Suspect]
     Active Substance: ROPINIROLE HYDROCHLORIDE
     Dosage: 6 MG, UNK
  4. AZILECT [Suspect]
     Active Substance: RASAGILINE MESYLATE
     Indication: PRODUCT USED FOR UNKNOWN INDICATION
     Dosage: 1 MG, QD

REACTIONS (19)
  - Headache [Unknown]
  - Neck pain [Unknown]
  - Vision blurred [Unknown]
  - Blood pressure fluctuation [Unknown]
  - Dysphagia [Unknown]
  - Diarrhoea [Unknown]
  - Feeling abnormal [Unknown]
  - Palpitations [Unknown]
  - Pollakiuria [Unknown]
  - Dizziness [Unknown]
  - Tinnitus [Unknown]
  - Back pain [Unknown]
  - Malaise [Unknown]
  - Dyskinesia [Unknown]
  - Head discomfort [Unknown]
  - Muscular weakness [Unknown]
  - Oropharyngeal pain [Unknown]
  - Somnolence [Unknown]
  - Tremor [Unknown]

NARRATIVE: CASE EVENT DATE: 2015
